FAERS Safety Report 16165974 (Version 1)
Quarter: 2019Q2

REPORT INFORMATION
  Report Type: Spontaneous
  Country: GB (occurrence: GB)
  Receive Date: 20190406
  Receipt Date: 20190406
  Transmission Date: 20190711
  Serious: Yes (Other)
  Sender: FDA-Public Use
  Company Number: GB-ACCORD-118469

PATIENT
  Age: 34 Year
  Sex: Female
  Weight: 88 kg

DRUGS (10)
  1. DARIFENACIN/DARIFENACIN HYDROBROMIDE [Concomitant]
     Dates: start: 20190109
  2. MORPHINE [Concomitant]
     Active Substance: MORPHINE
     Dosage: 2.5 ML - 5ML UP TO FOUR TIMES DAILY
     Dates: start: 20180801
  3. HYDROCORTISONE. [Concomitant]
     Active Substance: HYDROCORTISONE
     Dosage: APPLY TWICE DAILY
     Dates: start: 20181228, end: 20190104
  4. OMEPRAZOLE. [Concomitant]
     Active Substance: OMEPRAZOLE
     Dates: start: 20180801
  5. OXYBUTYNIN/OXYBUTYNIN HYDROCHLORIDE [Suspect]
     Active Substance: OXYBUTYNIN
     Indication: PRODUCT USED FOR UNKNOWN INDICATION
     Dates: start: 20181228
  6. NAPROXEN. [Concomitant]
     Active Substance: NAPROXEN
     Dates: start: 20180801
  7. SENNA ALEXANDRINA [Concomitant]
     Active Substance: SENNA LEAF
     Dosage: AT NIGHT
     Dates: start: 20190109, end: 20190119
  8. TRAMADOL. [Concomitant]
     Active Substance: TRAMADOL
     Dosage: TAKE 1 OR 2 EVERY FOUR TO SIX HOURS OR NO MORE ...
     Dates: start: 20180801
  9. COSMOCOL [Concomitant]
     Dosage: TAKE ONE TO THREE SACHETS DAILY IN DIVIDED DOSES
     Dates: start: 20190109, end: 20190201
  10. GABAPENTIN. [Concomitant]
     Active Substance: GABAPENTIN
     Dates: start: 20181116

REACTIONS (1)
  - Haemoptysis [Recovered/Resolved]

NARRATIVE: CASE EVENT DATE: 20190201
